FAERS Safety Report 7497824 (Version 5)
Quarter: 2014Q2

REPORT INFORMATION
  Report Type: Report from Study
  Country: JP (occurrence: JP)
  Receive Date: 20100723
  Receipt Date: 20140512
  Transmission Date: 20141212
  Serious: Yes (Hospitalization)
  Sender: FDA-Public Use
  Company Number: JP-BIOGENIDEC-2009BI025768

PATIENT
  Age: 30 Year
  Sex: Female

DRUGS (10)
  1. AVONEX [Suspect]
     Indication: RELAPSING-REMITTING MULTIPLE SCLEROSIS
     Route: 030
     Dates: start: 20090311, end: 20110912
  2. AVONEX [Suspect]
     Indication: RELAPSING-REMITTING MULTIPLE SCLEROSIS
     Route: 030
     Dates: start: 20120513
  3. PREDNISOLONE [Concomitant]
     Dates: start: 20090918
  4. PREDNISOLONE [Concomitant]
     Dates: start: 20091030
  5. PREDNISOLONE [Concomitant]
     Dates: start: 20091211
  6. PREDNISOLONE [Concomitant]
     Dates: start: 20100417
  7. KOLANTYL [Concomitant]
     Dates: start: 20090503
  8. KOLANTYL [Concomitant]
     Dates: start: 20090529
  9. KOLANTYL [Concomitant]
     Dates: start: 20090717
  10. ACTONEL [Concomitant]
     Dates: start: 20090918

REACTIONS (4)
  - Pyelonephritis [Recovered/Resolved]
  - Contrast media allergy [Recovered/Resolved]
  - Multiple sclerosis relapse [Recovered/Resolved]
  - White blood cell count increased [Recovered/Resolved]
